FAERS Safety Report 7424537-6 (Version None)
Quarter: 2011Q2

REPORT INFORMATION
  Report Type: 
  Country: None (occurrence: None)
  Receive Date: 20110419
  Receipt Date: 20110406
  Transmission Date: 20111010
  Serious: Yes (Hospitalization)
  Sender: FDA-Public Use
  Company Number: JP-JNJFOC-20091003759

PATIENT
  Sex: Male
  Weight: 54 kg

DRUGS (26)
  1. PREDNISOLONE [Suspect]
     Indication: BEHCET'S SYNDROME
     Route: 048
  2. MUCOSTA [Concomitant]
     Indication: PROPHYLAXIS
     Route: 048
  3. REMICADE [Suspect]
     Route: 042
  4. PREDNISOLONE [Suspect]
     Route: 048
  5. HALCION [Concomitant]
     Indication: INSOMNIA
     Dosage: STARTED ^BEFORE AUG-2008^
     Route: 048
  6. TERNELIN [Concomitant]
     Indication: BACK PAIN
     Route: 048
  7. BAKTAR [Concomitant]
     Indication: PROPHYLAXIS
     Route: 048
  8. REMICADE [Suspect]
     Route: 042
  9. REMICADE [Suspect]
     Indication: BEHCET'S SYNDROME
     Route: 042
  10. NEORAL [Suspect]
     Indication: BEHCET'S SYNDROME
     Route: 048
  11. PREDNISOLONE [Suspect]
     Route: 048
  12. FOSAMAC [Concomitant]
     Indication: OSTEOPOROSIS
     Route: 048
  13. VOLTAREN [Concomitant]
     Indication: BEHCET'S SYNDROME
     Route: 054
  14. PREDNISOLONE [Suspect]
     Dosage: STARTED ^BEFORE SEP-2007^
     Route: 048
  15. PREDNISOLONE [Suspect]
     Route: 048
  16. REMICADE [Suspect]
     Route: 042
  17. NEORAL [Suspect]
     Dosage: STARTED ^BEFORE SEP-2007^
     Route: 048
  18. PREDNISOLONE [Suspect]
     Route: 048
  19. DEPAS [Concomitant]
     Indication: ANXIETY DISORDER
     Route: 048
  20. DIAZEPAM [Concomitant]
     Indication: INSOMNIA
     Route: 048
  21. COLCHICINE [Concomitant]
     Indication: BEHCET'S SYNDROME
     Dosage: STARTED ^BEFORE SEP-2007^
     Route: 048
  22. REMICADE [Suspect]
     Route: 042
  23. NEORAL [Suspect]
     Route: 048
  24. BAKTAR [Concomitant]
     Indication: BEHCET'S SYNDROME
     Route: 048
  25. NEORAL [Suspect]
     Route: 048
  26. PREDNISOLONE [Suspect]
     Route: 048

REACTIONS (7)
  - MORAXELLA INFECTION [None]
  - URINARY TRACT INFECTION [None]
  - PNEUMOTHORAX [None]
  - DIARRHOEA [None]
  - LEUKOPENIA [None]
  - PNEUMONIA [None]
  - CANDIDIASIS [None]
